FAERS Safety Report 14641619 (Version 2)
Quarter: 2018Q2

REPORT INFORMATION
  Report Type: Report from Study
  Country: JP (occurrence: JP)
  Receive Date: 20180315
  Receipt Date: 20180411
  Transmission Date: 20180711
  Serious: No
  Sender: FDA-Public Use
  Company Number: JP-COLLEGIUM PHARMACEUTICAL, INC.-JP-2018DEP000602

PATIENT
  Sex: Male

DRUGS (5)
  1. TAPENTADOL HYDROCHLORIDE [Suspect]
     Active Substance: TAPENTADOL HYDROCHLORIDE
     Dosage: 37.5 MG, BID
     Route: 048
     Dates: start: 20150129, end: 20150306
  2. OXINORM                            /00045603/ [Concomitant]
     Active Substance: OXYCODONE HYDROCHLORIDE
     Indication: CANCER PAIN
     Dosage: UNK
     Dates: start: 20150201, end: 20150201
  3. LOXOPROFEN [Concomitant]
     Active Substance: LOXOPROFEN
     Indication: CANCER PAIN
     Dosage: UNK
     Dates: end: 20150128
  4. TAPENTADOL HYDROCHLORIDE [Suspect]
     Active Substance: TAPENTADOL HYDROCHLORIDE
     Indication: CANCER PAIN
     Dosage: 25 MG, BID
     Route: 048
     Dates: start: 20150119, end: 20150129
  5. OXIFAST [Concomitant]
     Active Substance: OXYCODONE
     Indication: CANCER PAIN
     Dosage: UNK
     Dates: start: 20150201, end: 20150201

REACTIONS (1)
  - No adverse event [Unknown]
